FAERS Safety Report 11893883 (Version 3)
Quarter: 2016Q1

REPORT INFORMATION
  Report Type: Report from Study
  Country: US (occurrence: US)
  Receive Date: 20160107
  Receipt Date: 20160211
  Transmission Date: 20160526
  Serious: Yes (Other)
  Sender: FDA-Public Use
  Company Number: US-AMGEN-USASL2015140259

PATIENT
  Age: 71 Year
  Sex: Female
  Weight: 65.31 kg

DRUGS (1)
  1. PROLIA [Suspect]
     Active Substance: DENOSUMAB
     Indication: OSTEOPOROSIS POSTMENOPAUSAL
     Dosage: UNK
     Route: 065

REACTIONS (7)
  - Hypoacusis [Unknown]
  - Osteonecrosis of jaw [Unknown]
  - Injury [Unknown]
  - Mastoid operation [Unknown]
  - Mouth injury [Unknown]
  - Ear operation [Unknown]
  - Impaired healing [Unknown]

NARRATIVE: CASE EVENT DATE: 20150623
